FAERS Safety Report 8149935 (Version 2)
Quarter: 2013Q1

REPORT INFORMATION
  Report Type: Spontaneous
  Country: US (occurrence: US)
  Receive Date: 20110922
  Receipt Date: 20130325
  Transmission Date: 20140127
  Serious: No
  Sender: FDA-Public Use
  Company Number: US-ASTRAZENECA-2010SE54186

PATIENT
  Age: 49 Year
  Sex: Female
  Weight: 99.8 kg

DRUGS (10)
  1. SEROQUEL [Suspect]
     Indication: BIPOLAR DISORDER
     Route: 048
     Dates: start: 2006
  2. SEROQUEL [Suspect]
     Indication: BIPOLAR DISORDER
     Route: 048
     Dates: start: 2010
  3. VALIUM [Concomitant]
     Indication: DEPRESSION
  4. PROZAC [Concomitant]
     Indication: DEPRESSION
  5. XANAX [Concomitant]
     Indication: CONVULSION
  6. RELPAX [Concomitant]
  7. AMBIEN [Concomitant]
  8. PROMETHAZINE [Concomitant]
  9. WELLPAX [Concomitant]
     Indication: MIGRAINE
  10. RANITIDINE [Concomitant]
     Indication: GASTROOESOPHAGEAL REFLUX DISEASE

REACTIONS (6)
  - Mania [Unknown]
  - Insomnia [Unknown]
  - Mood swings [Unknown]
  - Abnormal behaviour [Unknown]
  - Abnormal behaviour [Unknown]
  - Drug dose omission [Unknown]
